FAERS Safety Report 6635564-0 (Version None)
Quarter: 2010Q1

REPORT INFORMATION
  Report Type: 
  Country: None (occurrence: None)
  Receive Date: 20100315
  Receipt Date: 20100126
  Transmission Date: 20100710
  Serious: No
  Sender: FDA-Public Use
  Company Number: US-ABBOTT-10P-163-0621971-00

PATIENT
  Sex: Male
  Weight: 76.726 kg

DRUGS (3)
  1. DEPAKOTE [Suspect]
     Indication: CONVULSION
     Dates: start: 20080101, end: 20091001
  2. DEPAKOTE [Suspect]
     Dates: end: 20080101
  3. DEPAKOTE ER [Suspect]
     Indication: CONVULSION
     Dates: start: 20091030

REACTIONS (10)
  - ALOPECIA [None]
  - DRUG LEVEL DECREASED [None]
  - DYSARTHRIA [None]
  - DYSPNOEA [None]
  - ELECTROENCEPHALOGRAM ABNORMAL [None]
  - HEADACHE [None]
  - LOSS OF CONSCIOUSNESS [None]
  - MEMORY IMPAIRMENT [None]
  - MYDRIASIS [None]
  - PARAESTHESIA [None]
